APPROVED DRUG PRODUCT: ZIDOVUDINE
Active Ingredient: ZIDOVUDINE
Strength: 10MG/ML
Dosage Form/Route: INJECTABLE;INJECTION
Application: A091457 | Product #001
Applicant: AMERICAN REGENT INC
Approved: May 6, 2010 | RLD: No | RS: No | Type: DISCN